FAERS Safety Report 8550531-8 (Version None)
Quarter: 2012Q3

REPORT INFORMATION
  Report Type: 
  Country: None (occurrence: None)
  Receive Date: 20120730
  Receipt Date: 20110608
  Transmission Date: 20120928
  Serious: No
  Sender: FDA-Public Use
  Company Number: US-ALLERGAN-1107817US

PATIENT
  Age: 55 Year
  Sex: Female

DRUGS (2)
  1. PERMANENT EYE MAKE UP APPLICATION [Suspect]
     Indication: SKIN WRINKLING
  2. LATISSE [Suspect]
     Indication: GROWTH OF EYELASHES
     Dosage: UNK

REACTIONS (1)
  - APPLICATION SITE BLEEDING [None]
